FAERS Safety Report 7950869-9 (Version None)
Quarter: 2011Q4

REPORT INFORMATION
  Report Type: 
  Country: None (occurrence: None)
  Receive Date: 20111201
  Receipt Date: 20111123
  Transmission Date: 20120403
  Serious: Yes (Hospitalization)
  Sender: FDA-Public Use
  Company Number: CA-BIOGENIDEC-2011BI038254

PATIENT
  Age: 40 Year
  Sex: Male

DRUGS (1)
  1. AVONEX [Suspect]
     Indication: MULTIPLE SCLEROSIS
     Route: 030
     Dates: start: 20091015

REACTIONS (6)
  - INFLUENZA [None]
  - MULTIPLE SCLEROSIS RELAPSE [None]
  - DIABETES MELLITUS [None]
  - WEIGHT DECREASED [None]
  - UPPER GASTROINTESTINAL HAEMORRHAGE [None]
  - ELECTROLYTE IMBALANCE [None]
